FAERS Safety Report 7597911-5 (Version None)
Quarter: 2011Q3

REPORT INFORMATION
  Report Type: 
  Country: None (occurrence: None)
  Receive Date: 20110708
  Receipt Date: 20110629
  Transmission Date: 20111222
  Serious: Yes (Other)
  Sender: FDA-Public Use
  Company Number: RU-ABBOTT-11P-251-0835391-00

PATIENT
  Age: 45 Year
  Sex: Male

DRUGS (3)
  1. TRICOR [Suspect]
     Indication: BLOOD TRIGLYCERIDES INCREASED
  2. TRICOR [Suspect]
     Indication: DIABETIC RETINOPATHY
  3. TRICOR [Suspect]
     Indication: DIABETES MELLITUS
     Route: 048
     Dates: start: 20110224, end: 20110615

REACTIONS (1)
  - BASAL CELL CARCINOMA [None]
